FAERS Safety Report 6437761-6 (Version None)
Quarter: 2009Q4

REPORT INFORMATION
  Report Type: 
  Country: None (occurrence: None)
  Receive Date: 20091112
  Receipt Date: 20091103
  Transmission Date: 20100525
  Serious: Yes (Hospitalization)
  Sender: FDA-Public Use
  Company Number: ES-ABBOTT-09P-144-0577033-00

PATIENT
  Sex: Female
  Weight: 74 kg

DRUGS (5)
  1. HUMIRA [Suspect]
     Indication: RHEUMATOID ARTHRITIS
     Route: 058
     Dates: start: 20041102
  2. ARAVA [Concomitant]
     Indication: RHEUMATOID ARTHRITIS
     Dates: start: 20010801
  3. SALAZOPIRINA [Concomitant]
     Indication: RHEUMATOID ARTHRITIS
     Dates: start: 20031101
  4. NEURONTIN [Concomitant]
     Indication: RHEUMATOID ARTHRITIS
     Dates: start: 20040101
  5. EXTUR [Concomitant]
     Indication: HYPERTENSION
     Dates: start: 20020101

REACTIONS (3)
  - BRONCHIAL HYPERREACTIVITY [None]
  - RESPIRATORY FAILURE [None]
  - RESPIRATORY TRACT INFECTION [None]
